FAERS Safety Report 4996308-1 (Version None)
Quarter: 2006Q2

REPORT INFORMATION
  Report Type: 
  Country: None (occurrence: None)
  Receive Date: 20060505
  Receipt Date: 20060426
  Transmission Date: 20061013
  Serious: Yes (Other)
  Sender: FDA-Public Use
  Company Number: 2006-04-1779

PATIENT
  Age: 47 Year
  Sex: Female
  Weight: 65 kg

DRUGS (4)
  1. AERIUS (DESLORATADINE) TABLETS [Suspect]
     Indication: CONJUNCTIVITIS
     Dosage: 5MG QD ORAL
     Route: 048
     Dates: start: 20060315, end: 20060419
  2. AERIUS (DESLORATADINE) TABLETS [Suspect]
     Indication: RHINITIS ALLERGIC
     Dosage: 5MG QD ORAL
     Route: 048
     Dates: start: 20060315, end: 20060419
  3. LEVOCETIRIZINE TABLETS [Suspect]
     Indication: RHINITIS ALLERGIC
     Dosage: 5MG QD ORAL
     Route: 048
     Dates: start: 20060315, end: 20060419
  4. MELOXICAM SUPPOSITORIES [Concomitant]

REACTIONS (5)
  - FACE OEDEMA [None]
  - HYPOAESTHESIA ORAL [None]
  - REFUSAL OF TREATMENT BY PATIENT [None]
  - VIITH NERVE PARALYSIS [None]
  - VIRAL INFECTION [None]
